FAERS Safety Report 7797010-3 (Version None)
Quarter: 2011Q4

REPORT INFORMATION
  Report Type: 
  Country: None (occurrence: None)
  Receive Date: 20111005
  Receipt Date: 20110928
  Transmission Date: 20120403
  Serious: Yes (Hospitalization)
  Sender: FDA-Public Use
  Company Number: US-B.I. PHARMACEUTICALS,INC./RIDGEFIELD-2011-BP-23065BP

PATIENT
  Sex: Female

DRUGS (1)
  1. PRADAXA [Suspect]

REACTIONS (3)
  - CEREBROVASCULAR ACCIDENT [None]
  - HYPOAESTHESIA [None]
  - VIITH NERVE PARALYSIS [None]
